FAERS Safety Report 6493041-4 (Version None)
Quarter: 2009Q4

REPORT INFORMATION
  Report Type: 
  Country: None (occurrence: None)
  Receive Date: 20091214
  Receipt Date: 20091204
  Transmission Date: 20100525
  Serious: Yes (Other)
  Sender: FDA-Public Use
  Company Number: GXKR2009TR13128

PATIENT
  Age: 10 Year
  Sex: Male

DRUGS (5)
  1. LAMOTRIGINE (NGX) [Suspect]
     Indication: GRAND MAL CONVULSION
     Dosage: 100 MG/DAY
     Route: 065
  2. LAMOTRIGINE (NGX) [Suspect]
     Dosage: 150 MG/DAY
     Route: 065
  3. LAMOTRIGINE (NGX) [Suspect]
     Dosage: 100 MG/DAY (DECREASED WITHIN 2 WEEKS)
     Route: 065
  4. LAMOTRIGINE (NGX) [Suspect]
     Dosage: 75 MG/DAY (DECREASED WITHIN 2 WEEKS)
     Route: 065
  5. MAGNESIUM [Concomitant]
     Indication: HYPOMAGNESAEMIA
     Route: 065

REACTIONS (16)
  - ABDOMINAL DISCOMFORT [None]
  - ABNORMAL BEHAVIOUR [None]
  - AGGRESSION [None]
  - COMMUNICATION DISORDER [None]
  - DISTRACTIBILITY [None]
  - DIZZINESS [None]
  - HEADACHE [None]
  - INAPPROPRIATE AFFECT [None]
  - INSOMNIA [None]
  - IRRITABILITY [None]
  - LOGORRHOEA [None]
  - MANIA [None]
  - PSYCHOMOTOR HYPERACTIVITY [None]
  - PSYCHOSEXUAL DISORDER [None]
  - SOLILOQUY [None]
  - SPEECH DISORDER [None]
